FAERS Safety Report 21051035 (Version 1)
Quarter: 2022Q3

REPORT INFORMATION
  Report Type: Report from Study
  Country: US (occurrence: US)
  Receive Date: 20220707
  Receipt Date: 20220707
  Transmission Date: 20221027
  Serious: Yes (Hospitalization)
  Sender: FDA-Public Use
  Company Number: US-GILEAD-2022-0587864

PATIENT
  Sex: Female

DRUGS (22)
  1. AZTREONAM LYSINE [Suspect]
     Active Substance: AZTREONAM LYSINE
     Indication: Cystic fibrosis
     Dosage: 75 MG, TID, 28 DAYS ON, 28 DAYS OFF
     Route: 055
  2. VITAMINS NOS [Concomitant]
     Active Substance: VITAMINS
  3. ALPRAZOLAM [Concomitant]
     Active Substance: ALPRAZOLAM
  4. ALBUTEROL SULFATE [Concomitant]
     Active Substance: ALBUTEROL SULFATE
  5. CORLANOR [Concomitant]
     Active Substance: IVABRADINE HYDROCHLORIDE
  6. CREON [Concomitant]
     Active Substance: PANCRELIPASE AMYLASE\PANCRELIPASE LIPASE\PANCRELIPASE PROTEASE
  7. ZYRTEC [Concomitant]
     Active Substance: CETIRIZINE HYDROCHLORIDE
  8. URSODIOL [Concomitant]
     Active Substance: URSODIOL
  9. LORAZEPAM [Concomitant]
     Active Substance: LORAZEPAM
  10. CYCLOBENZAPRINE HYDROCHLORIDE [Concomitant]
     Active Substance: CYCLOBENZAPRINE HYDROCHLORIDE
  11. COMBIVENT [Concomitant]
     Active Substance: ALBUTEROL SULFATE\IPRATROPIUM BROMIDE
  12. IPRATROPIUM [Concomitant]
     Active Substance: IPRATROPIUM
  13. ACETYLCYSTEINE [Concomitant]
     Active Substance: ACETYLCYSTEINE
  14. SODIUM CHLORIDE [Concomitant]
     Active Substance: SODIUM CHLORIDE
  15. BUDESONIDE [Concomitant]
     Active Substance: BUDESONIDE
  16. MAGNESIUM [Concomitant]
     Active Substance: MAGNESIUM
  17. CALCIUM [Concomitant]
     Active Substance: CALCIUM
  18. VITAMIN D NOS [Concomitant]
     Active Substance: VITAMIN D NOS
  19. PREDNISONE [Concomitant]
     Active Substance: PREDNISONE
  20. AZITHROMYCIN [Concomitant]
     Active Substance: AZITHROMYCIN
  21. TOBRAMYCIN [Concomitant]
     Active Substance: TOBRAMYCIN
  22. MEROPENEM [Concomitant]
     Active Substance: MEROPENEM

REACTIONS (1)
  - COVID-19 [Unknown]
